FAERS Safety Report 8190566-0 (Version None)
Quarter: 2012Q1

REPORT INFORMATION
  Report Type: 
  Country: None (occurrence: None)
  Receive Date: 20120307
  Receipt Date: 20120227
  Transmission Date: 20120608
  Serious: Yes (Other)
  Sender: FDA-Public Use
  Company Number: TR-ROCHE-1043842

PATIENT
  Sex: Male

DRUGS (1)
  1. XELODA [Suspect]
     Indication: RECTAL CANCER
     Dosage: DOSE REPORTED AS 500 MG 3+3
     Route: 048
     Dates: start: 20120123, end: 20120225

REACTIONS (1)
  - INTESTINAL OPERATION [None]
